FAERS Safety Report 10459115 (Version 3)
Quarter: 2015Q1

REPORT INFORMATION
  Report Type: Report from Study
  Country: BE (occurrence: BE)
  Receive Date: 20140917
  Receipt Date: 20150202
  Transmission Date: 20150720
  Serious: Yes (Death, Hospitalization, Disabling)
  Sender: FDA-Public Use
  Company Number: BE-JNJFOC-20140903373

PATIENT
  Age: 94 Year
  Sex: Male

DRUGS (8)
  1. ABIRATERONE ACETATE [Suspect]
     Active Substance: ABIRATERONE ACETATE
     Indication: PROSTATE CANCER METASTATIC
     Route: 048
     Dates: start: 20140220, end: 20140522
  2. MEDROL [Concomitant]
     Active Substance: METHYLPREDNISOLONE
     Indication: PROSTATE CANCER METASTATIC
     Route: 048
     Dates: start: 20140220
  3. SERETIDE [Concomitant]
     Active Substance: FLUTICASONE FUROATE\SALMETEROL XINAFOATE
     Dosage: 60/500
     Route: 048
  4. STEOVIT D3 [Concomitant]
     Route: 048
  5. FIRMAGON [Concomitant]
     Active Substance: DEGARELIX ACETATE
     Indication: PROSTATE CANCER METASTATIC
     Route: 058
     Dates: start: 20120516
  6. ASAFLOW [Concomitant]
     Active Substance: ASPIRIN
     Route: 048
  7. XGEVA [Concomitant]
     Active Substance: DENOSUMAB
     Indication: PROSTATE CANCER METASTATIC
     Route: 058
     Dates: start: 20130603
  8. DAKTARIN [Concomitant]
     Active Substance: MICONAZOLE NITRATE
     Route: 048
     Dates: start: 20140423

REACTIONS (3)
  - Dyspnoea [Not Recovered/Not Resolved]
  - Prostate cancer metastatic [Fatal]
  - Pneumonia [Not Recovered/Not Resolved]

NARRATIVE: CASE EVENT DATE: 20140405
